FAERS Safety Report 6521194-8 (Version None)
Quarter: 2009Q4

REPORT INFORMATION
  Report Type: 
  Country: None (occurrence: None)
  Receive Date: 20091229
  Receipt Date: 20091223
  Transmission Date: 20100525
  Serious: No
  Sender: FDA-Public Use
  Company Number: US-BAYER-200943533NA

PATIENT
  Sex: Male

DRUGS (1)
  1. AVELOX [Suspect]
     Indication: DRUG USE FOR UNKNOWN INDICATION
     Dosage: UNIT DOSE: 400 MG

REACTIONS (9)
  - ASTHENOPIA [None]
  - BLOOD PRESSURE INCREASED [None]
  - DIZZINESS [None]
  - HEART RATE INCREASED [None]
  - HYPERSENSITIVITY [None]
  - IMPATIENCE [None]
  - LIP SWELLING [None]
  - PRURITUS [None]
  - SWELLING FACE [None]
